FAERS Safety Report 18364486 (Version 1)
Quarter: 2020Q3

REPORT INFORMATION
  Report Type: Spontaneous
  Country: US (occurrence: US)
  Receive Date: 20200928
  Receipt Date: 20200928
  Transmission Date: 20201103
  Serious: Yes (Death)
  Sender: FDA-Public Use
  Company Number: None

PATIENT
  Age: 6 Decade
  Sex: Male

DRUGS (1)
  1. REMDESIVIR. [Suspect]
     Active Substance: REMDESIVIR
     Indication: COVID-19
     Dates: start: 2020

REACTIONS (11)
  - Staphylococcal infection [None]
  - Enterococcal infection [None]
  - Acute respiratory failure [None]
  - Diffuse alveolar damage [None]
  - Product use in unapproved indication [None]
  - Pulmonary embolism [None]
  - Blood creatinine increased [None]
  - Culture urine positive [None]
  - Fibrin D dimer increased [None]
  - Respiratory failure [None]
  - Blood culture positive [None]
